FAERS Safety Report 15046136 (Version 9)
Quarter: 2018Q3

REPORT INFORMATION
  Report Type: Spontaneous
  Country: DE (occurrence: DE)
  Receive Date: 20180621
  Receipt Date: 20180920
  Transmission Date: 20181010
  Serious: Yes (Other)
  Sender: FDA-Public Use
  Company Number: DE-PFIZER INC-2018247726

PATIENT
  Age: 18 Year
  Sex: Female

DRUGS (9)
  1. IMATINIB [Suspect]
     Active Substance: IMATINIB
     Indication: EWING^S SARCOMA
     Dosage: 400 MG, UNK
     Route: 048
  2. DASATINIB. [Suspect]
     Active Substance: DASATINIB
     Dosage: UNK, RESUMED AT FULL?DOSE
  3. IMATINIB [Suspect]
     Active Substance: IMATINIB
     Dosage: UNK, FULL DOSE AFTER THE END OF RADIOTHERAPY
     Route: 065
  4. CELECOXIB. [Suspect]
     Active Substance: CELECOXIB
     Dosage: UNK, RESUMED AT FULL?DOSE
  5. EPIRUBICIN HCL [Suspect]
     Active Substance: EPIRUBICIN HYDROCHLORIDE
     Dosage: UNK, FULL DOSE AFTER THE END OF RADIOTHERAPY
     Route: 042
  6. IMATINIB [Suspect]
     Active Substance: IMATINIB
     Dosage: UNK, 50% DOSE REDUCTION
     Route: 048
  7. CELECOXIB. [Suspect]
     Active Substance: CELECOXIB
     Indication: EWING^S SARCOMA
     Dosage: 200 MG, UNK
     Route: 048
  8. EPIRUBICIN HCL [Suspect]
     Active Substance: EPIRUBICIN HYDROCHLORIDE
     Indication: EWING^S SARCOMA
     Dosage: 100 MG/M2, UNK
     Route: 042
  9. DASATINIB. [Suspect]
     Active Substance: DASATINIB
     Indication: EWING^S SARCOMA
     Dosage: 100 MG, UNK
     Route: 048

REACTIONS (10)
  - Neoplasm progression [Unknown]
  - Nausea [Unknown]
  - Depression [Unknown]
  - Thrombocytopenia [Unknown]
  - Anxiety [Unknown]
  - Anaemia [Unknown]
  - Product use in unapproved indication [Unknown]
  - Lymphopenia [Unknown]
  - Vomiting [Unknown]
  - Neutropenia [Unknown]
